FAERS Safety Report 4328923-2 (Version None)
Quarter: 2004Q1

REPORT INFORMATION
  Report Type: 
  Country: None (occurrence: None)
  Receive Date: 20040331
  Receipt Date: 20040315
  Transmission Date: 20041129
  Serious: Yes (Death)
  Sender: FDA-Public Use
  Company Number: A-US2002-01737

PATIENT
  Age: 79 Year
  Sex: Male

DRUGS (1)
  1. TRACLEER [Suspect]
     Indication: PULMONARY HYPERTENSION
     Dosage: 125 MG, BID
     Dates: start: 20020301

REACTIONS (2)
  - HAIR GROWTH ABNORMAL [None]
  - UNEXPECTED THERAPEUTIC DRUG EFFECT [None]
